FAERS Safety Report 7167062-2 (Version None)
Quarter: 2010Q4

REPORT INFORMATION
  Report Type: 
  Country: None (occurrence: None)
  Receive Date: 20101216
  Receipt Date: 20101214
  Transmission Date: 20110411
  Serious: Yes (Other)
  Sender: FDA-Public Use
  Company Number: AT-BAYER-2010-004552

PATIENT
  Sex: Female

DRUGS (2)
  1. MIRENA [Suspect]
     Indication: CONTRACEPTION
     Dosage: UNK
     Route: 015
     Dates: start: 20030101
  2. MIRENA [Suspect]
     Dosage: UNK
     Route: 015
     Dates: start: 20080101

REACTIONS (1)
  - ENDOMETRIAL CANCER [None]
